FAERS Safety Report 9516063 (Version 1)
Quarter: 2013Q3

REPORT INFORMATION
  Report Type: Spontaneous
  Country: US (occurrence: US)
  Receive Date: 20130911
  Receipt Date: 20130911
  Transmission Date: 20140515
  Serious: Yes (Other)
  Sender: FDA-Public Use
  Company Number: US-PFIZER INC-2013261087

PATIENT
  Age: 60 Year
  Sex: Female
  Weight: 140 kg

DRUGS (5)
  1. EFFEXOR [Suspect]
     Indication: MAJOR DEPRESSION
     Dosage: 250 MG, 1X/DAY
  2. VENLAFAXINE HCL [Suspect]
     Indication: MAJOR DEPRESSION
     Dosage: 250 MG, 1X/DAY
  3. LYRICA [Concomitant]
     Indication: FIBROMYALGIA
     Dosage: 150 MG, UNK
  4. PERCOCET [Concomitant]
     Indication: PAIN
     Dosage: UNK, AS NEEDED
  5. OXYCONTIN [Concomitant]
     Indication: PAIN
     Dosage: 80 MG, AS NEEDED

REACTIONS (8)
  - Mental impairment [Unknown]
  - Drug ineffective [Unknown]
  - Blood oestrogen increased [Recovering/Resolving]
  - Progesterone decreased [Recovering/Resolving]
  - Feeling abnormal [Unknown]
  - Asthenia [Unknown]
  - Blood testosterone decreased [Recovering/Resolving]
  - Thyroid disorder [Recovering/Resolving]
